FAERS Safety Report 14731506 (Version 1)
Quarter: 2018Q2

REPORT INFORMATION
  Report Type: Spontaneous
  Country: US (occurrence: US)
  Receive Date: 20180407
  Receipt Date: 20180407
  Transmission Date: 20180711
  Serious: Yes (Other)
  Sender: FDA-Public Use
  Company Number: US-TEVA-2018-US-878011

PATIENT
  Sex: Female

DRUGS (2)
  1. BUDESONIDE. [Suspect]
     Active Substance: BUDESONIDE
     Indication: CHRONIC OBSTRUCTIVE PULMONARY DISEASE
     Dosage: DOSE STRENGTH: 1 MG/2 ML
     Route: 065
     Dates: start: 201501
  2. BUDESONIDE. [Suspect]
     Active Substance: BUDESONIDE
     Indication: PNEUMONITIS
     Route: 065

REACTIONS (8)
  - Respiratory tract infection [Unknown]
  - Oesophageal disorder [Unknown]
  - Pulmonary function test abnormal [Unknown]
  - Condition aggravated [Unknown]
  - Muscle spasms [Unknown]
  - Pulmonary congestion [Unknown]
  - Muscle tightness [Unknown]
  - Nasopharyngitis [Unknown]

NARRATIVE: CASE EVENT DATE: 20180309
